FAERS Safety Report 17312931 (Version 2)
Quarter: 2020Q1

REPORT INFORMATION
  Report Type: Report from Study
  Country: IT (occurrence: IT)
  Receive Date: 20200124
  Receipt Date: 20200203
  Transmission Date: 20200409
  Serious: Yes (Hospitalization, Disabling)
  Sender: FDA-Public Use
  Company Number: IT-ROCHE-1535004

PATIENT
  Age: 76 Year
  Sex: Female
  Weight: 75 kg

DRUGS (18)
  1. PACLITAXEL. [Suspect]
     Active Substance: PACLITAXEL
     Indication: HER-2 POSITIVE BREAST CANCER
     Dosage: FORM STRENGTH 80 MG/M2 AND FREQUENCY ONCE A WEEK AS PER PROTOCOL.?MOST RECENT DOSE: 14/JAN/2015
     Route: 042
     Dates: start: 20141028
  2. EPIRUBICIN [Suspect]
     Active Substance: EPIRUBICIN
     Indication: HER-2 POSITIVE BREAST CANCER
     Route: 065
     Dates: start: 20140805
  3. CLEXANE [Concomitant]
     Active Substance: ENOXAPARIN SODIUM
     Indication: PROPHYLAXIS
     Route: 065
     Dates: start: 20150205
  4. PANTORC [Concomitant]
     Active Substance: PANTOPRAZOLE SODIUM
     Indication: CARDIOTOXICITY
     Route: 065
     Dates: start: 20150205
  5. ALDACTONE [Concomitant]
     Active Substance: SPIRONOLACTONE
     Indication: CARDIOTOXICITY
     Route: 065
     Dates: start: 20150205
  6. PROCORALAN [Concomitant]
     Active Substance: IVABRADINE
     Indication: CARDIOTOXICITY
     Route: 065
     Dates: start: 20150205, end: 20150929
  7. ZOFRAN [Concomitant]
     Active Substance: ONDANSETRON HYDROCHLORIDE
     Indication: PROPHYLAXIS
     Route: 065
     Dates: start: 20141209, end: 20141209
  8. TRASTUZUMAB. [Suspect]
     Active Substance: TRASTUZUMAB
     Indication: HER-2 POSITIVE BREAST CANCER
     Dosage: LOADING DOSE ON DAY 1 OF CYCLE 1 AS PER PROTOCOL
     Route: 042
     Dates: start: 20141027, end: 20141027
  9. TRIMETON [Concomitant]
     Active Substance: CHLORPHENIRAMINE MALEATE
     Indication: PROPHYLAXIS
     Route: 065
     Dates: start: 20141209, end: 20141209
  10. LASIX [Concomitant]
     Active Substance: FUROSEMIDE
     Indication: CARDIOTOXICITY
     Route: 065
     Dates: start: 20150205
  11. PERTUZUMAB. [Suspect]
     Active Substance: PERTUZUMAB
     Indication: HER-2 POSITIVE BREAST CANCER
     Dosage: LOADING DOSE ON DAY 1 OF CYCLE 1 AS PER PROTOCOL
     Route: 042
     Dates: start: 20141027, end: 20141027
  12. PERTUZUMAB. [Suspect]
     Active Substance: PERTUZUMAB
     Dosage: MAINTENANCE DOSE?MOST RECENT DOSE PRIOR TO THE SAE WAS ON 30/DEC/2014
     Route: 042
     Dates: end: 20141230
  13. TRASTUZUMAB. [Suspect]
     Active Substance: TRASTUZUMAB
     Dosage: MAINTENANCE DOSE (414 MG)?MOST RECENT DOSE PRIOR TO THE SAE WAS ON 30/DEC/2014
     Route: 042
     Dates: end: 20141230
  14. SOLDESAM [Concomitant]
     Active Substance: DEXAMETHASONE
     Indication: PROPHYLAXIS
     Route: 065
     Dates: start: 20141209, end: 20141209
  15. ZANTAC [Concomitant]
     Active Substance: RANITIDINE HYDROCHLORIDE
     Indication: PROPHYLAXIS
     Route: 065
     Dates: start: 20141209, end: 20141209
  16. ENAPREN [Concomitant]
     Active Substance: ENALAPRIL MALEATE
     Indication: CARDIOTOXICITY
     Route: 065
     Dates: start: 20150205
  17. CYCLOPHOSPHAMIDE. [Suspect]
     Active Substance: CYCLOPHOSPHAMIDE
     Indication: HER-2 POSITIVE BREAST CANCER
     Route: 065
     Dates: start: 20140805
  18. SEQUACOR [Concomitant]
     Active Substance: BISOPROLOL
     Indication: CARDIOTOXICITY
     Route: 065
     Dates: start: 20150205

REACTIONS (1)
  - N-terminal prohormone brain natriuretic peptide increased [Recovered/Resolved with Sequelae]

NARRATIVE: CASE EVENT DATE: 20150205
